FAERS Safety Report 10368425 (Version 14)
Quarter: 2015Q2

REPORT INFORMATION
  Report Type: Report from Study
  Country: CA (occurrence: CA)
  Receive Date: 20140807
  Receipt Date: 20150615
  Transmission Date: 20150821
  Serious: Yes (Hospitalization, Other)
  Sender: FDA-Public Use
  Company Number: PHHY2011CA71643

PATIENT
  Age: 36 Year
  Sex: Female

DRUGS (23)
  1. VALSARTAN. [Suspect]
     Active Substance: VALSARTAN
     Indication: PRODUCT USED FOR UNKNOWN INDICATION
     Dosage: UNK
     Route: 065
     Dates: end: 201407
  2. XOLAIR [Suspect]
     Active Substance: OMALIZUMAB
     Dosage: UNK
     Route: 058
     Dates: start: 20140328
  3. XOLAIR [Suspect]
     Active Substance: OMALIZUMAB
     Dosage: UNK
     Route: 058
     Dates: start: 20141205
  4. XOLAIR [Suspect]
     Active Substance: OMALIZUMAB
     Dosage: UNK
     Route: 058
     Dates: start: 20150604
  5. PREDNISONE. [Concomitant]
     Active Substance: PREDNISONE
     Dosage: 20 MG, QD
     Route: 065
  6. XOLAIR [Suspect]
     Active Substance: OMALIZUMAB
     Dosage: UNK
     Route: 058
     Dates: start: 20121129
  7. XOLAIR [Suspect]
     Active Substance: OMALIZUMAB
     Dosage: UNK
     Route: 058
     Dates: start: 20140214
  8. XOLAIR [Suspect]
     Active Substance: OMALIZUMAB
     Dosage: UNK
     Route: 058
     Dates: start: 20140228
  9. XOLAIR [Suspect]
     Active Substance: OMALIZUMAB
     Dosage: UNK
     Route: 058
     Dates: start: 20141024
  10. SYMBICORT [Concomitant]
     Active Substance: BUDESONIDE\FORMOTEROL FUMARATE DIHYDRATE
     Indication: PRODUCT USED FOR UNKNOWN INDICATION
     Route: 065
  11. PREDNISONE. [Concomitant]
     Active Substance: PREDNISONE
     Indication: PRODUCT USED FOR UNKNOWN INDICATION
     Dosage: 30 MG, QD
     Route: 065
  12. PREDNISONE. [Concomitant]
     Active Substance: PREDNISONE
     Dosage: 5.5 MG, QD
     Route: 065
  13. SPORANOX [Concomitant]
     Active Substance: ITRACONAZOLE\SODIUM CHLORIDE
     Indication: PRODUCT USED FOR UNKNOWN INDICATION
     Route: 065
  14. UNIPHYL [Concomitant]
     Active Substance: THEOPHYLLINE ANHYDROUS
     Indication: PRODUCT USED FOR UNKNOWN INDICATION
     Route: 065
  15. ALVESCO [Concomitant]
     Active Substance: CICLESONIDE
     Indication: PRODUCT USED FOR UNKNOWN INDICATION
     Dosage: 2 TO 4 DF (PUFF), QD
     Route: 065
  16. VENTOLIN [Concomitant]
     Active Substance: ALBUTEROL SULFATE
     Indication: PRODUCT USED FOR UNKNOWN INDICATION
     Route: 065
  17. XOLAIR [Suspect]
     Active Substance: OMALIZUMAB
     Indication: ASTHMA
     Dosage: 225 MG, BIW
     Route: 058
     Dates: start: 20101221
  18. XOLAIR [Suspect]
     Active Substance: OMALIZUMAB
     Dosage: UNK
     Route: 058
     Dates: start: 20140912
  19. XOLAIR [Suspect]
     Active Substance: OMALIZUMAB
     Dosage: UNK
     Route: 058
     Dates: start: 20150227
  20. PREDNISONE. [Concomitant]
     Active Substance: PREDNISONE
     Dosage: 10 MG, QD
     Route: 065
  21. XOLAIR [Suspect]
     Active Substance: OMALIZUMAB
     Dosage: UNK
     Route: 058
     Dates: start: 20140313
  22. XOLAIR [Suspect]
     Active Substance: OMALIZUMAB
     Dosage: UNK
     Route: 058
     Dates: start: 20141110
  23. PREDNISONE. [Concomitant]
     Active Substance: PREDNISONE
     Dosage: 10 MG, QD
     Route: 065

REACTIONS (33)
  - Weight decreased [Unknown]
  - Abdominal pain upper [Unknown]
  - Nausea [Unknown]
  - Weight increased [Unknown]
  - Fatigue [Recovered/Resolved]
  - Cystic fibrosis [Unknown]
  - Increased bronchial secretion [Unknown]
  - Asthenia [Unknown]
  - Productive cough [Unknown]
  - Malaise [Unknown]
  - Influenza [Unknown]
  - Pyrexia [Unknown]
  - Heart rate increased [Not Recovered/Not Resolved]
  - Oedema peripheral [Unknown]
  - Lung infection [Unknown]
  - Pulmonary function test decreased [Unknown]
  - Menstruation irregular [Unknown]
  - Nasopharyngitis [Unknown]
  - Ankle fracture [Unknown]
  - Gait disturbance [Unknown]
  - Hypertension [Not Recovered/Not Resolved]
  - Fall [Unknown]
  - Cough [Unknown]
  - Dyspnoea [Unknown]
  - Respiratory rate increased [Unknown]
  - Hypotension [Unknown]
  - Somnolence [Unknown]
  - Viral infection [Recovered/Resolved]
  - Respiratory tract inflammation [Unknown]
  - Injury [Unknown]
  - Respiratory tract congestion [Unknown]
  - Pain in extremity [Unknown]
  - Extra dose administered [Unknown]

NARRATIVE: CASE EVENT DATE: 201101
